FAERS Safety Report 19690976 (Version 1)
Quarter: 2021Q3

REPORT INFORMATION
  Report Type: Spontaneous
  Country: US (occurrence: US)
  Receive Date: 20210812
  Receipt Date: 20210812
  Transmission Date: 20211014
  Serious: No
  Sender: FDA-Public Use
  Company Number: US-GW PHARMA-202108USGW03886

PATIENT

DRUGS (1)
  1. EPIDIOLEX [Suspect]
     Active Substance: CANNABIDIOL
     Indication: EPILEPSY
     Dosage: 22.89 MG/KG/DAY, 270 MILLIGRAM, BID
     Route: 048
     Dates: start: 20201105

REACTIONS (6)
  - Product dose omission issue [Unknown]
  - Insurance issue [Unknown]
  - Prescribed overdose [Unknown]
  - Seizure [Unknown]
  - Product prescribing issue [Unknown]
  - Product use in unapproved indication [Unknown]

NARRATIVE: CASE EVENT DATE: 20210805
